FAERS Safety Report 8262465 (Version 5)
Quarter: 2013Q1

REPORT INFORMATION
  Report Type: Spontaneous
  Country: CA (occurrence: CA)
  Receive Date: 20111123
  Receipt Date: 20130226
  Transmission Date: 20140127
  Serious: Yes (Other)
  Sender: FDA-Public Use
  Company Number: CA-ROCHE-1015228

PATIENT
  Age: 50 Year
  Sex: Male

DRUGS (4)
  1. XOLAIR [Suspect]
     Indication: ASTHMA
     Route: 058
     Dates: start: 20100929
  2. XOLAIR [Suspect]
     Route: 065
     Dates: start: 20111115
  3. XOLAIR [Suspect]
     Route: 065
     Dates: start: 20120320
  4. XOLAIR [Suspect]
     Route: 065
     Dates: start: 20130219

REACTIONS (4)
  - Hypertension [Unknown]
  - Heart rate increased [Unknown]
  - Injection site discomfort [Unknown]
  - Limb discomfort [Unknown]
